FAERS Safety Report 7996275-2 (Version None)
Quarter: 2011Q4

REPORT INFORMATION
  Report Type: 
  Country: None (occurrence: None)
  Receive Date: 20111220
  Receipt Date: 20111212
  Transmission Date: 20120403
  Serious: Yes (Hospitalization)
  Sender: FDA-Public Use
  Company Number: JP-ELI_LILLY_AND_COMPANY-JP201112003548

PATIENT
  Age: 89 Year
  Sex: Male

DRUGS (2)
  1. GEMZAR [Suspect]
     Dosage: UNK
     Route: 042
  2. GEMZAR [Suspect]
     Indication: PANCREATIC CARCINOMA
     Dosage: UNK
     Route: 042

REACTIONS (4)
  - ANAEMIA [None]
  - MALNUTRITION [None]
  - OEDEMA [None]
  - HYPOGLYCAEMIC UNCONSCIOUSNESS [None]
